FAERS Safety Report 5009307-0 (Version None)
Quarter: 2006Q2

REPORT INFORMATION
  Report Type: 
  Country: None (occurrence: None)
  Receive Date: 20060524
  Receipt Date: 20060515
  Transmission Date: 20061013
  Serious: Yes (Other)
  Sender: FDA-Public Use
  Company Number: PHRM2006FR01628

PATIENT
  Age: 39 Year
  Sex: Female

DRUGS (4)
  1. TEGRETOL [Suspect]
     Indication: EPILEPSY
     Dosage: 1000 MG/DAY
     Route: 048
  2. LAMICTAL [Concomitant]
     Indication: EPILEPSY
     Dosage: 150 MG, BID
     Route: 048
  3. ALEPSAL [Concomitant]
     Indication: EPILEPSY
     Dosage: 100 MG, QD
     Route: 048
  4. RIVOTRIL [Concomitant]
     Indication: EPILEPSY
     Dosage: PRN
     Route: 048

REACTIONS (4)
  - ARTHRALGIA [None]
  - DEFORMITY [None]
  - JOINT SWELLING [None]
  - RHEUMATOID ARTHRITIS [None]
